FAERS Safety Report 23481175 (Version 1)
Quarter: 2024Q1

REPORT INFORMATION
  Report Type: Spontaneous
  Country: CN (occurrence: CN)
  Receive Date: 20240205
  Receipt Date: 20240205
  Transmission Date: 20240410
  Serious: Yes (Hospitalization)
  Sender: FDA-Public Use
  Company Number: CN-CHEPLA-2024001403

PATIENT
  Age: 75 Year
  Sex: Male

DRUGS (8)
  1. CAPECITABINE [Suspect]
     Active Substance: CAPECITABINE
     Indication: Colon cancer
     Dosage: ROA: INTRAVENOUS INFUSION. FREQ: TWICE EVERY DAY. 21-DAY CYCLES?DAILY DOSE: 3 GRAM
     Route: 042
     Dates: start: 201907
  2. CAPECITABINE [Suspect]
     Active Substance: CAPECITABINE
     Indication: Colon cancer
     Dosage: ROA: INTRAVENOUS INFUSION. FREQ: TWICE EVERY DAY. 21-DAY CYCLES?DAILY DOSE: 3 GRAM
     Route: 042
     Dates: start: 202003
  3. OXALIPLATIN [Suspect]
     Active Substance: OXALIPLATIN
     Indication: Colon cancer
     Dosage: ROA: INTRAVENOUS INFUSION. 21-DAY CYCLES. D1
     Route: 042
     Dates: start: 201907
  4. OXALIPLATIN [Suspect]
     Active Substance: OXALIPLATIN
     Indication: Colon cancer
     Dosage: ROA: INTRAVENOUS INFUSION. 21-DAY CYCLES. D1
     Route: 042
     Dates: start: 202003
  5. CETUXIMAB [Suspect]
     Active Substance: CETUXIMAB
     Indication: Colon cancer
     Dosage: D1-8-15
     Dates: start: 201907, end: 202001
  6. CETUXIMAB [Suspect]
     Active Substance: CETUXIMAB
     Indication: Colon cancer
     Dates: start: 202003, end: 202008
  7. CETUXIMAB [Suspect]
     Active Substance: CETUXIMAB
     Indication: Colon cancer
     Dosage: CETUXIMAB WAS ADJUSTED TO 0.9G D1
     Dates: start: 202009, end: 202011
  8. CETUXIMAB [Suspect]
     Active Substance: CETUXIMAB
     Indication: Colon cancer
     Dates: start: 202011, end: 202012

REACTIONS (2)
  - Interstitial lung disease [Recovering/Resolving]
  - Rash [Not Recovered/Not Resolved]

NARRATIVE: CASE EVENT DATE: 20210106
